FAERS Safety Report 26149260 (Version 1)
Quarter: 2025Q4

REPORT INFORMATION
  Report Type: Spontaneous
  Country: EU (occurrence: EU)
  Receive Date: 20251212
  Receipt Date: 20251212
  Transmission Date: 20260117
  Serious: Yes (Other)
  Sender: AUROBINDO
  Company Number: EU-MLMSERVICE-20221216-3988946-1

PATIENT
  Age: 70 Year
  Sex: Male
  Weight: 61 kg

DRUGS (23)
  1. PREDNISOLONE [Suspect]
     Active Substance: PREDNISOLONE
     Indication: Cholangitis sclerosing
     Dosage: 20 MILLIGRAM, ONCE A DAY
  2. PREDNISOLONE [Suspect]
     Active Substance: PREDNISOLONE
     Indication: Immunoglobulin G4 related disease
     Dosage: 10 MILLIGRAM, ONCE A DAY
  3. PREDNISOLONE [Suspect]
     Active Substance: PREDNISOLONE
     Dosage: UNK (TAPERED WITHIN THE NEXT 4 WEEKS)
  4. PREDNISOLONE [Suspect]
     Active Substance: PREDNISOLONE
     Dosage: 15 MILLIGRAM, ONCE A DAY
  5. PREDNISOLONE [Suspect]
     Active Substance: PREDNISOLONE
     Dosage: 5 MILLIGRAM, ONCE A DAY
  6. PREDNISOLONE [Suspect]
     Active Substance: PREDNISOLONE
     Dosage: 30 MILLIGRAM, ONCE A DAY
  7. BUDESONIDE [Suspect]
     Active Substance: BUDESONIDE
     Indication: Cholangitis sclerosing
     Dosage: 9 MILLIGRAM, ONCE A DAY
  8. BUDESONIDE [Suspect]
     Active Substance: BUDESONIDE
     Dosage: UNK (SLOWLY INCREASED)
  9. BUDESONIDE [Suspect]
     Active Substance: BUDESONIDE
     Dosage: 3 MILLIGRAM, ONCE A DAY
  10. BUDESONIDE [Suspect]
     Active Substance: BUDESONIDE
     Dosage: 6 MILLIGRAM
  11. BUDESONIDE [Suspect]
     Active Substance: BUDESONIDE
     Dosage: 3 MILLIGRAM
  12. MERCAPTOPURINE [Suspect]
     Active Substance: MERCAPTOPURINE
     Indication: Immunoglobulin G4 related disease
     Dosage: 50 MILLIGRAM, ONCE A DAY
  13. MERCAPTOPURINE [Suspect]
     Active Substance: MERCAPTOPURINE
     Dosage: 25 MILLIGRAM, ONCE A DAY
  14. MERCAPTOPURINE [Suspect]
     Active Substance: MERCAPTOPURINE
     Dosage: 30 MILLIGRAM, ONCE A DAY
  15. ASPIRIN [Concomitant]
     Active Substance: ASPIRIN
     Indication: Product used for unknown indication
     Dosage: 100 MILLIGRAM, ONCE A DAY
     Route: 065
  16. CALCIUM [Concomitant]
     Active Substance: CALCIUM
     Indication: Product used for unknown indication
     Dosage: 1250 MILLIGRAM, ONCE A DAY
     Route: 065
  17. ACTRAPID [Concomitant]
     Active Substance: INSULIN HUMAN
     Indication: Product used for unknown indication
     Dosage: 8 INTERNATIONAL UNIT, ONCE A DAY
     Route: 065
  18. LEVEMIR [Concomitant]
     Active Substance: INSULIN DETEMIR
     Indication: Product used for unknown indication
     Dosage: 10 INTERNATIONAL UNIT, ONCE A DAY
     Route: 065
  19. METOPROLOL [Concomitant]
     Active Substance: METOPROLOL
     Indication: Product used for unknown indication
     Dosage: 47.5 MILLIGRAM, ONCE A DAY
     Route: 065
  20. PANTOPRAZOLE [Concomitant]
     Active Substance: PANTOPRAZOLE
     Indication: Product used for unknown indication
     Dosage: 40 MILLIGRAM, ONCE A DAY
     Route: 065
  21. VITAMIN D [Concomitant]
     Active Substance: VITAMIN D NOS
     Indication: Product used for unknown indication
     Dosage: 1000 INTERNATIONAL UNIT, ONCE A DAY
     Route: 065
  22. MEROPENEM [Concomitant]
     Active Substance: MEROPENEM
     Indication: Product used for unknown indication
     Dosage: UNK
     Route: 065
  23. VANCOMYCIN [Concomitant]
     Active Substance: VANCOMYCIN
     Indication: Product used for unknown indication
     Dosage: UNK
     Route: 065

REACTIONS (2)
  - Acute cholecystitis necrotic [Recovered/Resolved]
  - Peritonitis [Recovered/Resolved]
